FAERS Safety Report 6681523-1 (Version None)
Quarter: 2010Q2

REPORT INFORMATION
  Report Type: 
  Country: None (occurrence: None)
  Receive Date: 20100414
  Receipt Date: 20100402
  Transmission Date: 20101027
  Serious: Yes (Other)
  Sender: FDA-Public Use
  Company Number: PHHY2010JP21993

PATIENT
  Sex: Female
  Weight: 37 kg

DRUGS (11)
  1. ICL670A ICL+DISTAB [Suspect]
     Indication: IRON OVERLOAD
     Dosage: 625 MG DAILY
     Route: 048
     Dates: start: 20081125, end: 20090203
  2. ICL670A ICL+DISTAB [Suspect]
     Dosage: 625 MG DAILY
     Route: 048
     Dates: start: 20090310, end: 20090331
  3. LASIX [Concomitant]
     Dosage: 20 MG, UNK
     Route: 048
     Dates: start: 20081125, end: 20090524
  4. DIOVAN [Concomitant]
     Dosage: 40 MG, UNK
     Route: 048
     Dates: start: 20081125, end: 20090524
  5. ASPARA K [Concomitant]
     Dosage: 1.2 G, UNK
     Route: 048
     Dates: start: 20081125, end: 20090213
  6. MUCOSTA [Concomitant]
     Indication: PROPHYLAXIS
     Dosage: 300 MG, UNK
     Route: 048
     Dates: start: 20081125, end: 20090524
  7. URSO 250 [Concomitant]
     Dosage: 300 MG, UNK
     Route: 048
     Dates: start: 20081125, end: 20090428
  8. ACTONEL [Concomitant]
     Indication: PROPHYLAXIS
     Dosage: UNK
     Route: 048
     Dates: start: 20081125, end: 20090524
  9. ALDACTONE [Concomitant]
     Dosage: 25 MG, UNK
     Route: 048
     Dates: start: 20090210, end: 20090524
  10. GLYCYRON [Concomitant]
     Dosage: 6 DF, UNK
     Route: 048
     Dates: start: 20090331, end: 20090524
  11. RED BLOOD CELLS, LEUCOCYTE DEPLETED [Concomitant]
     Dosage: 2 UNITS EVERY TWO WEEKS
     Dates: start: 20081212, end: 20090519

REACTIONS (2)
  - CARDIAC FAILURE [None]
  - HEPATITIS C [None]
